FAERS Safety Report 6527447-1 (Version None)
Quarter: 2010Q1

REPORT INFORMATION
  Report Type: 
  Country: None (occurrence: None)
  Receive Date: 20100105
  Receipt Date: 20091231
  Transmission Date: 20100710
  Serious: Yes (Other)
  Sender: FDA-Public Use
  Company Number: CA-B.I. PHARMACEUTICALS,INC./RIDGEFIELD-2010-CN-00005CN

PATIENT
  Age: 72 Year
  Sex: Male
  Weight: 86.2 kg

DRUGS (6)
  1. FLOMAX [Suspect]
     Dosage: 1 EVERY 1 DAY(S)
     Route: 048
  2. PMS-CLONAZEPAM [Suspect]
     Route: 048
  3. APO-PRIMIDONE [Concomitant]
     Route: 048
  4. ASPIRIN [Concomitant]
     Route: 048
  5. LIPITOR [Concomitant]
     Route: 048
  6. MICARDIS [Concomitant]
     Route: 048

REACTIONS (5)
  - DRY MOUTH [None]
  - DRY THROAT [None]
  - DYSPNOEA [None]
  - PAIN [None]
  - TONGUE DRY [None]
